FAERS Safety Report 6034949-3 (Version None)
Quarter: 2009Q1

REPORT INFORMATION
  Report Type: 
  Country: None (occurrence: None)
  Receive Date: 20090112
  Receipt Date: 20000718
  Transmission Date: 20090719
  Serious: No
  Sender: FDA-Public Use
  Company Number: US-ABBOTT-08P-163-0462259-00

PATIENT
  Sex: Male

DRUGS (2)
  1. HYTRIN [Suspect]
     Indication: DRUG USE FOR UNKNOWN INDICATION
  2. CAPTOPRIL [Concomitant]
     Indication: BLOOD PRESSURE

REACTIONS (2)
  - DIZZINESS [None]
  - HEADACHE [None]
